FAERS Safety Report 16822335 (Version 1)
Quarter: 2019Q3

REPORT INFORMATION
  Report Type: Spontaneous
  Country: US (occurrence: US)
  Receive Date: 20190918
  Receipt Date: 20190918
  Transmission Date: 20191005
  Serious: No
  Sender: FDA-Public Use
  Company Number: US-CELGENEUS-USA-20190903266

PATIENT

DRUGS (5)
  1. OTEZLA [Suspect]
     Active Substance: APREMILAST
     Indication: ARTHRITIS
     Route: 048
  2. METHOTREXATE. [Concomitant]
     Active Substance: METHOTREXATE
     Indication: ARTHRITIS
     Route: 065
  3. OTEZLA [Suspect]
     Active Substance: APREMILAST
     Indication: OFF LABEL USE
  4. XELJANZ [Concomitant]
     Active Substance: TOFACITINIB CITRATE
     Indication: ARTHRITIS
     Route: 058
  5. HUMIRA [Concomitant]
     Active Substance: ADALIMUMAB
     Indication: ARTHRITIS
     Route: 065

REACTIONS (1)
  - Therapeutic product effect decreased [Unknown]
